FAERS Safety Report 9032417 (Version 1)
Quarter: 2013Q1

REPORT INFORMATION
  Report Type: Report from Study
  Country: US (occurrence: US)
  Receive Date: 20130125
  Receipt Date: 20130125
  Transmission Date: 20140127
  Serious: No
  Sender: FDA-Public Use
  Company Number: US-VERTEX PHARMACEUTICALS INC.-2013-001163

PATIENT
  Age: 53 Year
  Sex: Male
  Weight: 80 kg

DRUGS (7)
  1. VX-950 (TELAPREVIR) [Suspect]
     Indication: HEPATITIS C
     Dosage: 750 MG, TID
     Route: 048
  2. PEGASYS [Suspect]
     Indication: HEPATITIS C
  3. RIBAVIRIN [Suspect]
     Indication: HEPATITIS C
     Dosage: 200 MG, UNK
  4. METFORMIN [Concomitant]
     Dosage: 500 MG, UNK
  5. LOSARTAN POTASSIUM [Concomitant]
     Dosage: 50 MG, UNK
  6. MULTIVITAMIN                       /00097801/ [Concomitant]
  7. ASPIRIN CHILDREN [Concomitant]

REACTIONS (4)
  - Decreased appetite [Recovered/Resolved]
  - Weight decreased [Unknown]
  - Vomiting [Recovered/Resolved]
  - Nausea [Recovered/Resolved]
